FAERS Safety Report 4377741-8 (Version None)
Quarter: 2004Q2

REPORT INFORMATION
  Report Type: 
  Country: None (occurrence: None)
  Receive Date: 20040615
  Receipt Date: 20040604
  Transmission Date: 20050107
  Serious: Yes (Other)
  Sender: FDA-Public Use
  Company Number: US-BRISTOL-MYERS SQUIBB COMPANY-12607610

PATIENT
  Sex: Male

DRUGS (3)
  1. CISPLATIN [Suspect]
     Indication: TESTIS CANCER
     Dosage: ON DAYS 1-5 OF CYCLE
  2. VP-16 [Suspect]
     Indication: TESTIS CANCER
     Dosage: DAYS 1-5
  3. BLEOMYCIN HCL [Suspect]
     Indication: TESTIS CANCER
     Dosage: ON DAYS 1,8,15

REACTIONS (1)
  - AZOOSPERMIA [None]
